FAERS Safety Report 5643237-6 (Version None)
Quarter: 2008Q1

REPORT INFORMATION
  Report Type: 
  Country: None (occurrence: None)
  Receive Date: 20080228
  Receipt Date: 20080218
  Transmission Date: 20080703
  Serious: Yes (Other)
  Sender: FDA-Public Use
  Company Number: ES-TEVA-167742ISR

PATIENT
  Age: 57 Year
  Sex: Female

DRUGS (4)
  1. PACLITAXEL SOLUTION CONCENTRATE FOR INFUSION,6MG/ML [Suspect]
     Route: 042
     Dates: start: 20071205, end: 20071205
  2. RANITIDINE [Concomitant]
     Route: 042
     Dates: start: 20071205, end: 20071205
  3. GRANISETRON [Concomitant]
     Route: 042
     Dates: start: 20071205, end: 20071205
  4. DEXAMETHASONE TAB [Concomitant]
     Route: 042
     Dates: start: 20071205, end: 20071205

REACTIONS (2)
  - ANXIETY [None]
  - CHOKING [None]
